FAERS Safety Report 16417953 (Version 3)
Quarter: 2019Q3

REPORT INFORMATION
  Report Type: Report from Study
  Country: JP (occurrence: JP)
  Receive Date: 20190611
  Receipt Date: 20190904
  Transmission Date: 20191004
  Serious: Yes (Death, Hospitalization, Other)
  Sender: FDA-Public Use
  Company Number: JP-BRISTOL-MYERS SQUIBB COMPANY-BMS-2019-054378

PATIENT
  Age: 56 Year
  Sex: Male
  Weight: 75.6 kg

DRUGS (9)
  1. OXALIPLATIN. [Suspect]
     Active Substance: OXALIPLATIN
     Indication: PANCREATIC CARCINOMA
     Dosage: 165 MILLIGRAM
     Route: 042
     Dates: start: 20190520
  2. URSODEOXYCHOLIC ACID [Concomitant]
     Active Substance: URSODIOL
     Indication: HEPATOBILLIARY DISORDER PROPHYLAXIS
     Dosage: 200 MILLIGRAM, Q8H
     Route: 048
     Dates: start: 20190415
  3. NEXIUM [Concomitant]
     Active Substance: ESOMEPRAZOLE MAGNESIUM
     Indication: GASTRITIS PROPHYLAXIS
     Dosage: 20 MILLIGRAM, QD
     Route: 048
     Dates: start: 20190513
  4. FLUOROURACIL. [Suspect]
     Active Substance: FLUOROURACIL
     Indication: PANCREATIC CARCINOMA
     Dosage: 4666 MILLIGRAM
     Route: 042
     Dates: start: 20190520
  5. CELECOX [Concomitant]
     Active Substance: CELECOXIB
     Indication: CANCER PAIN
     Dosage: 100 MILLIGRAM, Q12H
     Route: 048
     Dates: start: 201903
  6. NIVOLUMAB [Suspect]
     Active Substance: NIVOLUMAB
     Indication: PANCREATIC CARCINOMA
     Dosage: 480 MILLIGRAM
     Route: 041
     Dates: start: 20190520
  7. GABALON [Concomitant]
     Active Substance: BACLOFEN
     Indication: HICCUPS
     Dosage: 5 MILLIGRAM
     Route: 048
     Dates: start: 20190522
  8. CALCIUM LEVOFOLINATE [Suspect]
     Active Substance: LEVOLEUCOVORIN CALCIUM
     Indication: PANCREATIC CARCINOMA
     Dosage: 400 MILLIGRAM
     Route: 042
     Dates: start: 20190520
  9. IRINOTECAN HYDROCHLORIDE. [Suspect]
     Active Substance: IRINOTECAN HYDROCHLORIDE
     Indication: PANCREATIC CARCINOMA
     Dosage: 290 MILLIGRAM
     Route: 042
     Dates: start: 20190520

REACTIONS (6)
  - Thrombophlebitis [Recovering/Resolving]
  - Malignant neoplasm progression [Fatal]
  - Sepsis [Not Recovered/Not Resolved]
  - Febrile neutropenia [Recovered/Resolved]
  - Cholangitis [Not Recovered/Not Resolved]
  - Duodenal stenosis [Not Recovered/Not Resolved]

NARRATIVE: CASE EVENT DATE: 20190528
